FAERS Safety Report 8837588 (Version 4)
Quarter: 2013Q2

REPORT INFORMATION
  Report Type: Spontaneous
  Country: US (occurrence: US)
  Receive Date: 20121012
  Receipt Date: 20130409
  Transmission Date: 20140414
  Serious: Yes (Hospitalization, Disabling, Congenital Anomaly, Other)
  Sender: FDA-Public Use
  Company Number: US-JNJFOC-20121006082

PATIENT
  Sex: Male

DRUGS (8)
  1. TOPAMAX [Suspect]
     Indication: FOETAL EXPOSURE DURING PREGNANCY
     Route: 064
  2. FLUOXETIN [Suspect]
     Indication: FOETAL EXPOSURE DURING PREGNANCY
     Route: 064
  3. ABILIFY [Suspect]
     Indication: FOETAL EXPOSURE DURING PREGNANCY
     Route: 064
  4. BUPROPION XL [Suspect]
     Indication: FOETAL EXPOSURE DURING PREGNANCY
     Route: 064
  5. ZOLOFT [Suspect]
     Indication: FOETAL EXPOSURE DURING PREGNANCY
     Route: 064
  6. SYMBICORT [Suspect]
     Indication: FOETAL EXPOSURE DURING PREGNANCY
     Route: 064
  7. GLYBURIDE [Suspect]
     Indication: FOETAL EXPOSURE DURING PREGNANCY
     Route: 064
  8. PROZAC [Suspect]
     Indication: FOETAL EXPOSURE DURING PREGNANCY
     Route: 064

REACTIONS (9)
  - Eustachian tube dysfunction [Unknown]
  - Gross motor delay [Not Recovered/Not Resolved]
  - Emotional disorder [Unknown]
  - Disability [Unknown]
  - Deafness bilateral [Unknown]
  - Otitis media chronic [Unknown]
  - Feeding disorder [Not Recovered/Not Resolved]
  - Cleft lip and palate [Unknown]
  - Speech disorder developmental [Not Recovered/Not Resolved]
